FAERS Safety Report 9989335 (Version 1)
Quarter: 2014Q1

REPORT INFORMATION
  Report Type: Spontaneous
  Country: US (occurrence: None)
  Receive Date: 20140123
  Receipt Date: 20140123
  Transmission Date: 20141002
  Serious: Yes (Hospitalization)
  Sender: FDA-Public Use
  Company Number: UTC-033647

PATIENT
  Age: 58 Year
  Sex: Female

DRUGS (1)
  1. REMODULIN (5 MILLIGRAM/MILLILITERS, INJECTION FOR INFUSION) (TREPROSTINIL SODIUM) [Suspect]
     Indication: PULMONARY ARTERIAL HYPERTENSION
     Dosage: 100.08 UG/KG (0.0695 UG/KG , 1 IN 1 MIN ), INTRAVENOUS DRIP  THERAPY DATES 31/JAN/2008 TO ONGOING
     Route: 041
     Dates: start: 20080131

REACTIONS (1)
  - Overdose [None]
